FAERS Safety Report 6395679-1 (Version None)
Quarter: 2009Q4

REPORT INFORMATION
  Report Type: 
  Country: None (occurrence: None)
  Receive Date: 20091009
  Receipt Date: 20091005
  Transmission Date: 20100525
  Serious: Yes (Life-Threatening)
  Sender: FDA-Public Use
  Company Number: PHHY2009CA43057

PATIENT
  Sex: Female

DRUGS (1)
  1. ACLASTA [Suspect]
     Indication: OSTEOPOROSIS
     Dosage: UNK
     Dates: start: 20080912

REACTIONS (4)
  - INFUSION SITE HAEMATOMA [None]
  - INFUSION SITE PAIN [None]
  - MORBID THOUGHTS [None]
  - VEIN DISORDER [None]
